FAERS Safety Report 20717666 (Version 1)
Quarter: 2022Q2

REPORT INFORMATION
  Report Type: Report from Study
  Country: IN (occurrence: IN)
  Receive Date: 20220417
  Receipt Date: 20220417
  Transmission Date: 20220721
  Serious: Yes (Life-Threatening, Hospitalization, Other)
  Sender: FDA-Public Use
  Company Number: IN-BRISTOL-MYERS SQUIBB COMPANY-2022-017429

PATIENT
  Age: 37 Year
  Sex: Male
  Weight: 60 kg

DRUGS (1)
  1. NIVOLUMAB [Suspect]
     Active Substance: NIVOLUMAB
     Indication: Hodgkin^s disease
     Dosage: 2 WEEKLY
     Route: 042
     Dates: start: 20220114

REACTIONS (4)
  - Pneumonia [Not Recovered/Not Resolved]
  - Infection [Unknown]
  - Haematochezia [Unknown]
  - Skin discolouration [Unknown]
